FAERS Safety Report 11171569 (Version 3)
Quarter: 2015Q2

REPORT INFORMATION
  Report Type: Spontaneous
  Country: US (occurrence: US)
  Receive Date: 20150608
  Receipt Date: 20150630
  Transmission Date: 20150821
  Serious: Yes (Death)
  Sender: FDA-Public Use
  Company Number: US-ASTELLAS-2015US017182

PATIENT
  Age: 83 Year
  Sex: Male

DRUGS (2)
  1. XTANDI [Suspect]
     Active Substance: ENZALUTAMIDE
     Indication: PROSTATE CANCER
     Dosage: 160 MG (FOUR CAPSULES), ONCE DAILY
     Route: 048
     Dates: start: 20150424, end: 20150603
  2. XTANDI [Suspect]
     Active Substance: ENZALUTAMIDE
     Route: 065
     Dates: end: 20150511

REACTIONS (10)
  - Vision blurred [Unknown]
  - Nail discolouration [Unknown]
  - Catheter site haemorrhage [Unknown]
  - Fall [Unknown]
  - Dysarthria [Unknown]
  - Dizziness [Unknown]
  - Restless legs syndrome [Unknown]
  - Underdose [Unknown]
  - Death [Fatal]
  - Contusion [Unknown]

NARRATIVE: CASE EVENT DATE: 20150604
